FAERS Safety Report 20887200 (Version 9)
Quarter: 2022Q4

REPORT INFORMATION
  Report Type: Spontaneous
  Country: CA (occurrence: CA)
  Receive Date: 20220528
  Receipt Date: 20221104
  Transmission Date: 20230113
  Serious: Yes (Other)
  Sender: FDA-Public Use
  Company Number: CA-CELLTRION INC.-2022CA004305

PATIENT

DRUGS (17)
  1. INFLECTRA [Suspect]
     Active Substance: INFLIXIMAB-DYYB
     Indication: Colitis ulcerative
     Dosage: 1 DF, STARTED IN HOSPITALUNKNOWN DOSE, WEEK 0
     Route: 042
     Dates: start: 20220130, end: 20220130
  2. INFLECTRA [Suspect]
     Active Substance: INFLIXIMAB-DYYB
     Dosage: 400 MG, AT WEEK 2 AND 6 THEN Q 8 WEEKS
     Route: 042
     Dates: start: 20220214, end: 20220704
  3. INFLECTRA [Suspect]
     Active Substance: INFLIXIMAB-DYYB
     Dosage: 400 MG, AT WEEK 2 AND 6 THEN Q 8 WEEKS
     Route: 042
     Dates: start: 20220314
  4. INFLECTRA [Suspect]
     Active Substance: INFLIXIMAB-DYYB
     Dosage: 400 MG, AT WEEK 2 AND 6 THEN Q 8 WEEKS
     Route: 042
     Dates: start: 20220509
  5. INFLECTRA [Suspect]
     Active Substance: INFLIXIMAB-DYYB
     Dosage: 400 MG, AT WEEK 2 AND 6 THEN Q 8 WEEKS
     Route: 042
     Dates: start: 20220704
  6. INFLECTRA [Suspect]
     Active Substance: INFLIXIMAB-DYYB
     Dosage: 400 MG, AT WEEK 2 AND 6 THEN Q 8 WEEKS
     Route: 042
     Dates: start: 20220829
  7. INFLECTRA [Suspect]
     Active Substance: INFLIXIMAB-DYYB
     Dosage: 10 MG/KG, EVERY 8 WEEK
     Route: 042
     Dates: start: 20220829
  8. ACETAMINOPHEN [Concomitant]
     Active Substance: ACETAMINOPHEN
     Indication: Premedication
     Dosage: 650 MG
     Route: 048
     Dates: start: 20220214, end: 20220214
  9. ACETAMINOPHEN [Concomitant]
     Active Substance: ACETAMINOPHEN
     Dosage: 650 MG
     Route: 048
     Dates: start: 20220314
  10. ASACOL [Concomitant]
     Active Substance: MESALAMINE
     Dosage: UNK, ASACOL X2 WEEKS
  11. BENADRYL [Concomitant]
     Active Substance: DIPHENHYDRAMINE HYDROCHLORIDE
     Indication: Premedication
     Dosage: 50 MG
     Route: 042
     Dates: start: 20220214, end: 20220214
  12. DIPHENHYDRAMINE [Concomitant]
     Active Substance: DIPHENHYDRAMINE
     Indication: Premedication
     Dosage: 50 MG
     Route: 048
     Dates: start: 20220314
  13. PREDNISONE [Concomitant]
     Active Substance: PREDNISONE
     Dosage: 40 MG , STARTED TO WEAN ON 16FEB2022
     Route: 065
     Dates: start: 20220216
  14. PREDNISONE [Concomitant]
     Active Substance: PREDNISONE
     Dosage: 10 MG, DAILY (DROPPING DOWN TO 5MG DAILY FOR ONE WEEK STARTING ON THURSDAY)
  15. PREDNISONE [Concomitant]
     Active Substance: PREDNISONE
     Dosage: 5 MG, DAILY (STOP DATE: 06-APR-2022)
  16. PREDNISONE [Concomitant]
     Active Substance: PREDNISONE
     Dosage: UNK
     Dates: start: 20220509
  17. TYLENOL [Concomitant]
     Active Substance: ACETAMINOPHEN
     Indication: Premedication
     Dosage: UNK

REACTIONS (30)
  - Hyperhidrosis [Not Recovered/Not Resolved]
  - Drug ineffective [Unknown]
  - Therapy non-responder [Unknown]
  - Off label use [Unknown]
  - Fatigue [Not Recovered/Not Resolved]
  - Stress [Unknown]
  - Sleep disorder [Not Recovered/Not Resolved]
  - Feeling hot [Unknown]
  - Chest discomfort [Recovered/Resolved]
  - Nervousness [Unknown]
  - Pain [Recovered/Resolved]
  - Anxiety [Not Recovered/Not Resolved]
  - Pruritus [Recovered/Resolved]
  - Rash [Unknown]
  - Headache [Recovered/Resolved]
  - Blood pressure fluctuation [Recovered/Resolved]
  - Infusion related reaction [Unknown]
  - Depression [Unknown]
  - Chest pain [Not Recovered/Not Resolved]
  - Abdominal distension [Unknown]
  - Hyperaesthesia teeth [Unknown]
  - Insomnia [Not Recovered/Not Resolved]
  - Hyperhidrosis [Not Recovered/Not Resolved]
  - Rash [Recovering/Resolving]
  - Trichorrhexis [Unknown]
  - Alopecia [Unknown]
  - Condition aggravated [Not Recovered/Not Resolved]
  - Pain [Recovering/Resolving]
  - Bone pain [Recovering/Resolving]
  - Gait disturbance [Recovering/Resolving]

NARRATIVE: CASE EVENT DATE: 20220101
